FAERS Safety Report 6251690-2 (Version None)
Quarter: 2009Q2

REPORT INFORMATION
  Report Type: 
  Country: None (occurrence: None)
  Receive Date: 20090625
  Receipt Date: 20090625
  Transmission Date: 20091009
  Serious: Yes (Death)
  Sender: FDA-Public Use
  Company Number: None

PATIENT
  Sex: Male
  Weight: 72.5755 kg

DRUGS (1)
  1. FENTANYL [Suspect]
     Indication: SCOLIOSIS
     Dosage: TRANSDERMAL; TWO TO THREE YEARS

REACTIONS (1)
  - ACCIDENTAL DEATH [None]
